FAERS Safety Report 18715579 (Version 1)
Quarter: 2021Q1

REPORT INFORMATION
  Report Type: Report from Study
  Country: None (occurrence: JP)
  Receive Date: 20210108
  Receipt Date: 20210108
  Transmission Date: 20210419
  Serious: Yes (Hospitalization)
  Sender: FDA-Public Use
  Company Number: JP-ABBVIE-20K-087-3620259-00

PATIENT
  Age: 72 Year
  Sex: Male

DRUGS (2)
  1. DUODOPA [Suspect]
     Active Substance: CARBIDOPA\LEVODOPA
  2. DUODOPA [Suspect]
     Active Substance: CARBIDOPA\LEVODOPA
     Indication: PARKINSON^S DISEASE
     Route: 050
     Dates: start: 20200828

REACTIONS (6)
  - On and off phenomenon [Unknown]
  - Stoma site discharge [Unknown]
  - Mobility decreased [Unknown]
  - Stoma site extravasation [Unknown]
  - Therapeutic product effect delayed [Unknown]
  - Malaise [Unknown]

NARRATIVE: CASE EVENT DATE: 2020
